FAERS Safety Report 9441687 (Version 1)
Quarter: 2013Q3

REPORT INFORMATION
  Report Type: Spontaneous
  Country: US (occurrence: US)
  Receive Date: 20130806
  Receipt Date: 20130806
  Transmission Date: 20140515
  Serious: Yes (Hospitalization)
  Sender: FDA-Public Use
  Company Number: US-BIOGENIDEC-2013BI070369

PATIENT
  Age: 35 Year
  Sex: Female

DRUGS (2)
  1. TYSABRI [Suspect]
     Indication: MULTIPLE SCLEROSIS
     Route: 042
     Dates: start: 20130625, end: 20130723
  2. DEXTROAMPHETAMINE [Concomitant]
     Indication: FATIGUE
     Route: 048
     Dates: start: 201307

REACTIONS (4)
  - Hypersensitivity [Recovered/Resolved]
  - Tachycardia [Unknown]
  - Dystonia [Unknown]
  - Nausea [Recovered/Resolved]
